FAERS Safety Report 12166029 (Version 1)
Quarter: 2016Q1

REPORT INFORMATION
  Report Type: Spontaneous
  Country: FR (occurrence: FR)
  Receive Date: 20160309
  Receipt Date: 20160309
  Transmission Date: 20160526
  Serious: Yes (Other)
  Sender: FDA-Public Use
  Company Number: FR-MYLANLABS-2016M1010320

PATIENT

DRUGS (2)
  1. LINEZOLID. [Suspect]
     Active Substance: LINEZOLID
     Indication: MYCOBACTERIUM CHELONAE INFECTION
     Route: 065
  2. CLARITHROMYCIN. [Interacting]
     Active Substance: CLARITHROMYCIN
     Indication: MYCOBACTERIUM CHELONAE INFECTION
     Dosage: 500 MG, BID
     Route: 065

REACTIONS (5)
  - Drug interaction [Recovering/Resolving]
  - Overdose [Recovering/Resolving]
  - Diarrhoea [Recovered/Resolved]
  - Renal impairment [Recovered/Resolved]
  - Pancytopenia [Recovering/Resolving]
